FAERS Safety Report 9787262 (Version 3)
Quarter: 2014Q1

REPORT INFORMATION
  Report Type: Spontaneous
  Country: TW (occurrence: TW)
  Receive Date: 20131230
  Receipt Date: 20140103
  Transmission Date: 20141002
  Serious: Yes (Hospitalization, Other)
  Sender: FDA-Public Use
  Company Number: TW-ROCHE-1325058

PATIENT
  Age: 64 Year
  Sex: Female

DRUGS (5)
  1. LUCENTIS [Suspect]
     Indication: DIABETIC RETINAL OEDEMA
     Route: 050
     Dates: start: 20131011
  2. LUCENTIS [Suspect]
     Route: 050
     Dates: start: 20131105
  3. LUCENTIS [Suspect]
     Route: 050
     Dates: start: 20131125
  4. LABETALOL [Concomitant]
     Dosage: ONE PILL
     Route: 048
  5. AMLODIPINE [Concomitant]
     Dosage: ONE PILL
     Route: 065

REACTIONS (3)
  - Cerebrovascular accident [Recovering/Resolving]
  - Hypertension [Recovering/Resolving]
  - Inappropriate schedule of drug administration [Unknown]
